FAERS Safety Report 21214022 (Version 3)
Quarter: 2022Q3

REPORT INFORMATION
  Report Type: Spontaneous
  Country: US (occurrence: US)
  Receive Date: 20220816
  Receipt Date: 20220907
  Transmission Date: 20221027
  Serious: Yes (Other)
  Sender: FDA-Public Use
  Company Number: US-GLAXOSMITHKLINE-US2021GSK150646

PATIENT
  Age: 41 Year
  Sex: Female

DRUGS (2)
  1. FLUOXETINE [Suspect]
     Active Substance: FLUOXETINE HYDROCHLORIDE
     Indication: Social anxiety disorder
     Dosage: 10 MILLIGRAM
     Route: 065
  2. FLUOXETINE [Suspect]
     Active Substance: FLUOXETINE HYDROCHLORIDE
     Dosage: UNK (INCREASED DOSES
     Route: 065

REACTIONS (6)
  - Dyspnoea [Recovered/Resolved]
  - Drug intolerance [Recovered/Resolved]
  - Loss of personal independence in daily activities [Recovered/Resolved]
  - Yawning [Recovered/Resolved]
  - Irritability [Recovered/Resolved]
  - Emotional distress [Recovered/Resolved]
